FAERS Safety Report 7031354-8 (Version None)
Quarter: 2010Q4

REPORT INFORMATION
  Report Type: 
  Country: None (occurrence: None)
  Receive Date: 20101006
  Receipt Date: 20100924
  Transmission Date: 20110411
  Serious: Yes (Death, Hospitalization, Other)
  Sender: FDA-Public Use
  Company Number: US-TYCO HEALTHCARE/MALLINCKRODT-T201002056

PATIENT
  Sex: Female

DRUGS (8)
  1. ACETAMINOPHEN AND HYDROCODONE BITARTRATE [Suspect]
     Indication: PAIN
     Dosage: UNK
  2. HYDROMORPHONE HCL [Suspect]
     Dosage: 2 MG, UNK
  3. HYDROMORPHONE HCL [Suspect]
     Dosage: 4 MG, UNK
  4. MORPHINE [Suspect]
     Indication: PAIN
     Dosage: UNK
  5. METHADOSE [Suspect]
     Indication: PAIN
     Dosage: UNK
  6. LYRICA [Suspect]
     Indication: PAIN
     Dosage: UNK
  7. CYCLOBENZAPRINE [Suspect]
     Indication: PAIN
     Dosage: UNK
  8. DIAZEPAM [Suspect]
     Indication: PAIN
     Dosage: UNK

REACTIONS (9)
  - ANXIETY [None]
  - DELUSIONAL DISORDER, UNSPECIFIED TYPE [None]
  - DISORIENTATION [None]
  - DRUG TOXICITY [None]
  - FALL [None]
  - HALLUCINATION [None]
  - PARANOIA [None]
  - SOCIAL AVOIDANT BEHAVIOUR [None]
  - SOMNAMBULISM [None]
